FAERS Safety Report 8591270-7 (Version None)
Quarter: 2012Q3

REPORT INFORMATION
  Report Type: 
  Country: None (occurrence: None)
  Receive Date: 20120814
  Receipt Date: 20120807
  Transmission Date: 20120928
  Serious: Yes (Other)
  Sender: FDA-Public Use
  Company Number: US-AMGEN-USASP2012049519

PATIENT
  Age: 64 Year
  Sex: Female

DRUGS (20)
  1. CLARITIN                           /00413701/ [Concomitant]
     Dosage: UNK
  2. ZOCOR [Concomitant]
     Dosage: UNK
  3. FLUTICASONE PROPIONATE [Concomitant]
     Dosage: UNK
  4. ARANESP [Suspect]
     Dosage: UNK
     Dates: start: 20111207
  5. LASIX [Concomitant]
     Dosage: UNK
  6. MIRALAX                            /00754501/ [Concomitant]
     Dosage: UNK UNK, PRN
  7. ARANESP [Suspect]
  8. SENSIPAR [Suspect]
     Indication: PRODUCT USED FOR UNKNOWN INDICATION
     Dosage: UNK
     Dates: start: 20120605
  9. SYNTHROID [Concomitant]
  10. AMBIEN [Concomitant]
     Dosage: UNK
  11. ALLOPURINOL [Concomitant]
     Dosage: UNK
  12. NEPHROCAPS                         /01801401/ [Concomitant]
     Dosage: UNK
  13. WELLBUTRIN [Concomitant]
  14. TYLENOL (CAPLET) [Concomitant]
     Dosage: UNK UNK, PRN
  15. ATACAND [Concomitant]
  16. NEXIUM [Concomitant]
     Dosage: UNK
  17. SINGULAIR [Concomitant]
     Dosage: UNK
  18. ARANESP [Suspect]
     Indication: ANAEMIA
     Dosage: UNK
     Dates: start: 20090101
  19. XOPENEX [Concomitant]
     Dosage: UNK
  20. COREG [Concomitant]
     Dosage: UNK

REACTIONS (1)
  - METASTATIC NEOPLASM [None]
